FAERS Safety Report 16651265 (Version 1)
Quarter: 2019Q3

REPORT INFORMATION
  Report Type: Report from Study
  Country: NL (occurrence: NL)
  Receive Date: 20190731
  Receipt Date: 20190731
  Transmission Date: 20191004
  Serious: Yes (Hospitalization)
  Sender: FDA-Public Use
  Company Number: NL-MYLANLABS-2018M1004179

PATIENT

DRUGS (5)
  1. FLUOROURACIL. [Suspect]
     Active Substance: FLUOROURACIL
     Dosage: 2400 MILLIGRAM/SQ. METER, Q2W (IN 46 HOURS)
     Route: 041
     Dates: start: 20160209
  2. AVASTIN [Suspect]
     Active Substance: BEVACIZUMAB
     Indication: COLORECTAL CANCER
     Dosage: 5 MILLIGRAM/KILOGRAM, Q2W (IN 15-30 MINUTES)
     Route: 042
     Dates: start: 20160209
  3. LEUCOVORIN                         /00566701/ [Suspect]
     Active Substance: LEUCOVORIN
     Indication: COLORECTAL CANCER
     Dosage: 400 MILLIGRAM/SQ. METER, Q2W (IN 120 MINUTES)
     Route: 042
     Dates: start: 20160209
  4. OXALIPLATIN. [Suspect]
     Active Substance: OXALIPLATIN
     Indication: COLORECTAL CANCER
     Dosage: 85 MILLIGRAM/SQ. METER, Q2W
     Route: 042
     Dates: start: 20160209
  5. FLUOROURACIL. [Suspect]
     Active Substance: FLUOROURACIL
     Indication: COLORECTAL CANCER
     Dosage: 400 MILLIGRAM/SQ. METER, Q2W (WITHIN 4 MINUTES ALL ON DAY 1)
     Route: 040
     Dates: start: 20160209

REACTIONS (1)
  - Gastroenteritis [Recovered/Resolved]

NARRATIVE: CASE EVENT DATE: 20160331
